FAERS Safety Report 8399459-7 (Version None)
Quarter: 2012Q2

REPORT INFORMATION
  Report Type: 
  Country: None (occurrence: None)
  Receive Date: 20120323
  Receipt Date: 20110729
  Transmission Date: 20120825
  Serious: Yes (Other)
  Sender: FDA-Public Use
  Company Number: 163-21880-11011985

PATIENT
  Age: 63 Year
  Sex: Male
  Weight: 68.0396 kg

DRUGS (16)
  1. REVLIMID [Suspect]
     Indication: MULTIPLE MYELOMA
     Dosage: 10 MG, 1 IN 1 D, PO, 25 MG, 1 IN 1 D, PO, 10 MG, DAILY FOR 21 DAYS, PO
     Route: 048
     Dates: start: 20090301
  2. REVLIMID [Suspect]
     Indication: MULTIPLE MYELOMA
     Dosage: 10 MG, 1 IN 1 D, PO, 25 MG, 1 IN 1 D, PO, 10 MG, DAILY FOR 21 DAYS, PO
     Route: 048
     Dates: start: 20100614
  3. REVLIMID [Suspect]
     Indication: MULTIPLE MYELOMA
     Dosage: 10 MG, 1 IN 1 D, PO, 25 MG, 1 IN 1 D, PO, 10 MG, DAILY FOR 21 DAYS, PO
     Route: 048
     Dates: start: 20090401
  4. LIPITOR [Concomitant]
  5. MIRALAX [Concomitant]
  6. ASPIRIN [Concomitant]
  7. FOLIC ACID [Concomitant]
  8. CALCIUM CARBONATE [Concomitant]
  9. METHADOSE [Concomitant]
  10. VITAMIN D [Concomitant]
  11. FLORASTOR (SACCHAROMYCES BOULARDII) [Concomitant]
  12. AMBIEN [Concomitant]
  13. BACTRIM [Concomitant]
  14. STOOL SOFTENER (DOCUSATE SODIUM) [Concomitant]
  15. VITAMIN B COMPLEX (B-KOMPLEX ^LECIVA^) [Concomitant]
  16. LYRICA [Concomitant]

REACTIONS (5)
  - CONDITION AGGRAVATED [None]
  - HALLUCINATION, AUDITORY [None]
  - HYPOACUSIS [None]
  - DIZZINESS [None]
  - TINNITUS [None]
